FAERS Safety Report 24742510 (Version 1)
Quarter: 2024Q4

REPORT INFORMATION
  Report Type: Spontaneous
  Country: US (occurrence: US)
  Receive Date: 20241217
  Receipt Date: 20241217
  Transmission Date: 20250115
  Serious: Yes (Death)
  Sender: AMGEN
  Company Number: US-AMGEN-USASP2024244829

PATIENT
  Age: 53 Year
  Sex: Male

DRUGS (1)
  1. PREDNISONE [Suspect]
     Active Substance: PREDNISONE
     Indication: Prophylaxis
     Dosage: 5 MILLIGRAM, QD
     Route: 065

REACTIONS (2)
  - Soft tissue sarcoma [Fatal]
  - Metastases to adrenals [Fatal]
